FAERS Safety Report 19176148 (Version 2)
Quarter: 2021Q3

REPORT INFORMATION
  Report Type: Report from Study
  Country: None (occurrence: US)
  Receive Date: 20210423
  Receipt Date: 20210705
  Transmission Date: 20211014
  Serious: Yes (Hospitalization)
  Sender: FDA-Public Use
  Company Number: US-ABBVIE-21K-163-3869613-00

PATIENT
  Sex: Female

DRUGS (1)
  1. RINVOQ [Suspect]
     Active Substance: UPADACITINIB
     Indication: RHEUMATOID ARTHRITIS
     Route: 048

REACTIONS (3)
  - Abdominal pain upper [Recovering/Resolving]
  - Blood count abnormal [Recovering/Resolving]
  - Uterine leiomyoma [Unknown]
